FAERS Safety Report 5678653-X (Version None)
Quarter: 2008Q1

REPORT INFORMATION
  Report Type: 
  Country: None (occurrence: None)
  Receive Date: 20080325
  Receipt Date: 20080312
  Transmission Date: 20080703
  Serious: Yes (Hospitalization)
  Sender: FDA-Public Use
  Company Number: JP-ELI_LILLY_AND_COMPANY-JP200712004328

PATIENT
  Age: 52 Year
  Sex: Male

DRUGS (3)
  1. GEMZAR [Suspect]
     Indication: GALLBLADDER CANCER NON-RESECTABLE
     Dosage: 1600 MG, OTHER
     Route: 042
  2. GEMZAR [Suspect]
     Dosage: 1200 MG, OTHER
     Route: 042
  3. GEMZAR [Suspect]
     Dosage: 900 MG, OTHER
     Route: 042

REACTIONS (2)
  - LIVER ABSCESS [None]
  - NEUTROPHIL COUNT DECREASED [None]
